FAERS Safety Report 4383235-6 (Version None)
Quarter: 2004Q2

REPORT INFORMATION
  Report Type: 
  Country: None (occurrence: None)
  Receive Date: 20040618
  Receipt Date: 20040602
  Transmission Date: 20050107
  Serious: Yes (Hospitalization)
  Sender: FDA-Public Use
  Company Number: US_0406103460

PATIENT
  Age: 1 Day
  Sex: Female
  Weight: 4 kg

DRUGS (4)
  1. HUMULIN R [Suspect]
     Dates: start: 19970101
  2. HUMULIN N [Suspect]
     Dates: start: 19970101
  3. AVALIDE [Concomitant]
  4. GALENIC/HYDROCHLOROTHIAZIDE/IRBESARTAN/ [Concomitant]

REACTIONS (4)
  - DRUG EXPOSURE DURING PREGNANCY [None]
  - HAEMORRHOIDS [None]
  - JAUNDICE NEONATAL [None]
  - OVERWEIGHT [None]
